FAERS Safety Report 21596037 (Version 12)
Quarter: 2023Q1

REPORT INFORMATION
  Report Type: Report from Study
  Country: BR (occurrence: BR)
  Receive Date: 20221115
  Receipt Date: 20230215
  Transmission Date: 20230418
  Serious: Yes (Other)
  Sender: FDA-Public Use
  Company Number: BR-002147023-NVSC2022BR253068

PATIENT
  Age: 85 Year
  Sex: Female
  Weight: 41 kg

DRUGS (12)
  1. KISQALI [Suspect]
     Active Substance: RIBOCICLIB
     Indication: Breast cancer
     Dosage: UNK (IN USE)
     Route: 065
  2. KISQALI [Suspect]
     Active Substance: RIBOCICLIB
     Indication: Lung cancer metastatic
     Dosage: 3 DOSAGE FORM, QD (3 TABLETS, ONCE A DAY, 1 TIME PER DAY)
     Route: 048
     Dates: start: 20221110, end: 20221223
  3. KISQALI [Suspect]
     Active Substance: RIBOCICLIB
     Dosage: 2 DOSAGE FORM (2 TABLET) (IN PAUSE)
     Route: 065
  4. KISQALI [Suspect]
     Active Substance: RIBOCICLIB
     Dosage: 2 DOSAGE FORM, QD (2 TABLETS, ONCE A DAY, 1 TIME PER DAY)
     Route: 048
     Dates: start: 20221223
  5. KISQALI [Suspect]
     Active Substance: RIBOCICLIB
     Dosage: 3 DOSAGE FORM (3 TABLETS)
     Route: 065
  6. KISQALI [Suspect]
     Active Substance: RIBOCICLIB
     Dosage: 2 DOSAGE FORM (2 TABLETS)
     Route: 065
  7. ANASTROZOLE [Suspect]
     Active Substance: ANASTROZOLE
     Indication: Lung cancer metastatic
     Dosage: 1 DOSAGE FORM, QD (1 TABLET, ONCE A DAY)
     Route: 048
     Dates: start: 20221027
  8. ATORVASTATIN [Suspect]
     Active Substance: ATORVASTATIN
     Indication: Blood cholesterol increased
     Dosage: 1 DOSAGE FORM, QD, (MANY YEARS AGO)
     Route: 048
  9. RAMIPRIL [Concomitant]
     Active Substance: RAMIPRIL
     Indication: Hypertension
     Dosage: UNK, QD (ONE 2.5 MG TABLET), MANY YEARS AGO
     Route: 048
  10. PURAN [Concomitant]
     Active Substance: LEVOTHYROXINE SODIUM
     Indication: Thyroid hormones decreased
     Dosage: 25 MG, QD, (MANY YEARS AGO)
     Route: 048
  11. FUROSEMIDE [Concomitant]
     Active Substance: FUROSEMIDE
     Indication: Hypertension
     Dosage: 40 MG, QD (HALF TABLET), MANY YEARS AGO
     Route: 048
  12. METOPROLOL SUCCINATE [Concomitant]
     Active Substance: METOPROLOL SUCCINATE
     Indication: Arrhythmia
     Dosage: 1 DOSAGE FORM, QD (MANY YEARS AGO)
     Route: 048

REACTIONS (20)
  - Salivary hypersecretion [Not Recovered/Not Resolved]
  - Mental fatigue [Not Recovered/Not Resolved]
  - Arthralgia [Not Recovered/Not Resolved]
  - Dry mouth [Not Recovered/Not Resolved]
  - Lung cancer metastatic [Not Recovered/Not Resolved]
  - Condition aggravated [Not Recovered/Not Resolved]
  - Eating disorder [Recovered/Resolved]
  - Abdominal discomfort [Recovered/Resolved]
  - Parosmia [Recovered/Resolved]
  - Fatigue [Not Recovered/Not Resolved]
  - Malaise [Recovered/Resolved]
  - Diarrhoea [Not Recovered/Not Resolved]
  - Emotional distress [Unknown]
  - Pleural effusion [Unknown]
  - Nausea [Not Recovered/Not Resolved]
  - Dyspnoea [Recovered/Resolved]
  - Speech disorder [Not Recovered/Not Resolved]
  - Discouragement [Not Recovered/Not Resolved]
  - Pulmonary pain [Recovered/Resolved]
  - Product use in unapproved indication [Unknown]

NARRATIVE: CASE EVENT DATE: 20221101
